FAERS Safety Report 9228017 (Version 2)
Quarter: 2013Q2

REPORT INFORMATION
  Report Type: Spontaneous
  Country: CA (occurrence: CA)
  Receive Date: 20130412
  Receipt Date: 20130503
  Transmission Date: 20140414
  Serious: Yes (Other)
  Sender: FDA-Public Use
  Company Number: CA-JNJFOC-20130404989

PATIENT
  Age: 60 Year
  Sex: Female
  Weight: 40.82 kg

DRUGS (1)
  1. NICODERM STEP 2 CLEAR [Suspect]
     Indication: SMOKING CESSATION THERAPY
     Route: 062
     Dates: start: 20130406, end: 20130407

REACTIONS (5)
  - Loss of consciousness [Recovered/Resolved]
  - Neck injury [Recovering/Resolving]
  - Fall [Recovering/Resolving]
  - Insomnia [Recovering/Resolving]
  - Product quality issue [Unknown]
